FAERS Safety Report 11440545 (Version 1)
Quarter: 2015Q3

REPORT INFORMATION
  Report Type: Spontaneous
  Country: US (occurrence: None)
  Receive Date: 20150831
  Receipt Date: 20150831
  Transmission Date: 20151125
  Serious: No
  Sender: FDA-Public Use
  Company Number: None

PATIENT
  Age: 41 Year
  Sex: Female
  Weight: 81.65 kg

DRUGS (8)
  1. NORCO [Concomitant]
     Active Substance: ACETAMINOPHEN\HYDROCODONE BITARTRATE
  2. IBUPROFEN. [Concomitant]
     Active Substance: IBUPROFEN
  3. BOTOX [Suspect]
     Active Substance: ONABOTULINUMTOXINA
     Indication: MIGRAINE
     Dates: start: 20150303, end: 20150706
  4. FIORANAL [Concomitant]
  5. ZOLFRAN [Concomitant]
  6. RIZATRIPTAN. [Concomitant]
     Active Substance: RIZATRIPTAN
  7. MIRILAX [Concomitant]
  8. SUDAFED [Concomitant]
     Active Substance: PSEUDOEPHEDRINE HYDROCHLORIDE

REACTIONS (6)
  - Headache [None]
  - Contusion [None]
  - Pain [None]
  - Injection site rash [None]
  - Hyperaesthesia [None]
  - Drug ineffective [None]

NARRATIVE: CASE EVENT DATE: 20150303
